FAERS Safety Report 4539206-X (Version None)
Quarter: 2004Q4

REPORT INFORMATION
  Report Type: 
  Country: None (occurrence: None)
  Receive Date: 20041227
  Receipt Date: 20041227
  Transmission Date: 20050328
  Serious: Yes (Life-Threatening, Hospitalization)
  Sender: FDA-Public Use
  Company Number: None

PATIENT
  Age: 57 Year
  Sex: Male
  Weight: 90.7194 kg

DRUGS (1)
  1. BEXTRA [Suspect]
     Indication: HAEMOLYTIC ANAEMIA
     Dosage: 1 TABLET ORAL
     Route: 048
     Dates: start: 20031215, end: 20040813

REACTIONS (5)
  - ASTHENIA [None]
  - DIFFICULTY IN WALKING [None]
  - DYSPNOEA [None]
  - HAEMOLYTIC ANAEMIA [None]
  - PAIN [None]
